FAERS Safety Report 16044871 (Version 1)
Quarter: 2019Q1

REPORT INFORMATION
  Report Type: Spontaneous
  Country: US (occurrence: US)
  Receive Date: 20190307
  Receipt Date: 20190307
  Transmission Date: 20190418
  Serious: No
  Sender: FDA-Public Use
  Company Number: US-009507513-1902USA003566

PATIENT
  Sex: Female

DRUGS (1)
  1. NEXPLANON [Suspect]
     Active Substance: ETONOGESTREL
     Indication: CONTRACEPTION
     Dosage: 68 MILLIGRAM,ONE TIME
     Route: 059
     Dates: start: 201603

REACTIONS (3)
  - Vaginal haemorrhage [Unknown]
  - Dysmenorrhoea [Unknown]
  - Headache [Unknown]
